FAERS Safety Report 18475374 (Version 2)
Quarter: 2020Q4

REPORT INFORMATION
  Report Type: Report from Study
  Country: JP (occurrence: JP)
  Receive Date: 20201106
  Receipt Date: 20201120
  Transmission Date: 20210114
  Serious: Yes (Hospitalization)
  Sender: FDA-Public Use
  Company Number: JP-EISAI MEDICAL RESEARCH-EC-2020-083298

PATIENT
  Age: 56 Year
  Sex: Female
  Weight: 38 kg

DRUGS (13)
  1. PERTUZUMAB (GENETICAL RECOMBINATION) [Suspect]
     Active Substance: PERTUZUMAB
     Dates: start: 20200130, end: 20201015
  2. TRASTUZUMAB (GENETICAL RECOMBINATION) [Suspect]
     Active Substance: TRASTUZUMAB
     Dates: start: 20200130, end: 20201015
  3. RINDERON V [Concomitant]
     Active Substance: BETAMETHASONE VALERATE
     Indication: RASH
     Route: 062
     Dates: start: 20190909
  4. HEPARINOID [Concomitant]
     Active Substance: CHONDROITIN SULFATE (BOVINE)
     Indication: SKIN DISORDER PROPHYLAXIS
     Route: 062
     Dates: start: 20191223
  5. ERIBULIN [Suspect]
     Active Substance: ERIBULIN
     Indication: BREAST CANCER
     Route: 042
     Dates: start: 20190828, end: 2019
  6. LOXOPROFEN [Concomitant]
     Active Substance: LOXOPROFEN
     Indication: PAIN
     Route: 048
     Dates: start: 20190905
  7. URSODEOXYCHOLIC ACID [Concomitant]
     Active Substance: URSODIOL
     Indication: PROPHYLAXIS
     Route: 048
     Dates: start: 20200827
  8. ERIBULIN [Suspect]
     Active Substance: ERIBULIN
     Route: 042
     Dates: start: 20191031, end: 20200109
  9. LOXOPROFEN [Concomitant]
     Active Substance: LOXOPROFEN
     Indication: PYREXIA
  10. ALDACTONE A [Concomitant]
     Active Substance: SPIRONOLACTONE
     Indication: PLEURAL EFFUSION
     Route: 048
     Dates: start: 20201015, end: 20201029
  11. TRASTUZUMAB (GENETICAL RECOMBINATION) [Suspect]
     Active Substance: TRASTUZUMAB
     Indication: BREAST CANCER
     Dates: start: 20190828, end: 20200129
  12. RILMAZAFONE HYDROCHLORIDE HYDRATE [Concomitant]
     Active Substance: RILMAZAFONE HYDROCHLORIDE
     Indication: INSOMNIA
     Route: 048
     Dates: start: 20190827
  13. PERTUZUMAB (GENETICAL RECOMBINATION) [Suspect]
     Active Substance: PERTUZUMAB
     Indication: BREAST CANCER
     Dates: start: 20190828, end: 20200129

REACTIONS (2)
  - Dyspnoea [Not Recovered/Not Resolved]
  - Malignant pleural effusion [Not Recovered/Not Resolved]

NARRATIVE: CASE EVENT DATE: 20201030
